FAERS Safety Report 9623664 (Version 1)
Quarter: 2013Q4

REPORT INFORMATION
  Report Type: Spontaneous
  Country: US (occurrence: US)
  Receive Date: 20131015
  Receipt Date: 20131015
  Transmission Date: 20140711
  Serious: Yes (Hospitalization, Other)
  Sender: FDA-Public Use
  Company Number: PHEH2013US021361

PATIENT
  Sex: Female

DRUGS (1)
  1. STALEVO [Suspect]
     Dosage: UNK UKN, UNK

REACTIONS (3)
  - Dysphonia [Unknown]
  - General physical health deterioration [Unknown]
  - Dysphagia [Unknown]
